FAERS Safety Report 7170223-X (Version None)
Quarter: 2010Q4

REPORT INFORMATION
  Report Type: 
  Country: None (occurrence: None)
  Receive Date: 20101123
  Receipt Date: 20100924
  Transmission Date: 20110411
  Serious: No
  Sender: FDA-Public Use
  Company Number: 019362

PATIENT
  Sex: Female
  Weight: 57 kg

DRUGS (6)
  1. CIMZIA [Suspect]
     Indication: CROHN'S DISEASE
     Dosage: (400 MG 1X/MONTH SUBCUTANEOUS) ; (200 MG 1X/2 WEEKS SUBCUTANEOUS)
     Route: 058
     Dates: start: 20100430, end: 20100601
  2. CIMZIA [Suspect]
     Indication: CROHN'S DISEASE
     Dosage: (400 MG 1X/MONTH SUBCUTANEOUS) ; (200 MG 1X/2 WEEKS SUBCUTANEOUS)
     Route: 058
     Dates: start: 20100805
  3. IMURAN [Concomitant]
  4. GABAPENTIN [Concomitant]
  5. AMITRIPTYLINE [Concomitant]
  6. LAMICTAL [Concomitant]

REACTIONS (3)
  - ABDOMINAL PAIN [None]
  - ASTHENIA [None]
  - MALAISE [None]
